FAERS Safety Report 13686927 (Version 3)
Quarter: 2017Q3

REPORT INFORMATION
  Report Type: Spontaneous
  Country: AU (occurrence: AU)
  Receive Date: 20170623
  Receipt Date: 20170814
  Transmission Date: 20171127
  Serious: Yes (Death, Other)
  Sender: FDA-Public Use
  Company Number: AU-PFIZER INC-2017270938

PATIENT
  Sex: Male

DRUGS (1)
  1. XYNTHA [Suspect]
     Active Substance: ANTIHEMOPHILIC FACTOR, HUMAN RECOMBINANT RESIDUES 743-1636 DELETED
     Indication: HAEMOPHILIA
     Dosage: 2000 IU, UNK
     Route: 042

REACTIONS (5)
  - Hepatitis C [Unknown]
  - Death [Fatal]
  - Acquired immunodeficiency syndrome [Unknown]
  - HIV infection [Unknown]
  - Intentional product misuse [Unknown]
